FAERS Safety Report 12865995 (Version 4)
Quarter: 2017Q1

REPORT INFORMATION
  Report Type: Spontaneous
  Country: CN (occurrence: CN)
  Receive Date: 20161020
  Receipt Date: 20170103
  Transmission Date: 20170428
  Serious: Yes (Hospitalization, Other)
  Sender: FDA-Public Use
  Company Number: CN-GLAXOSMITHKLINE-CN2016GSK152604

PATIENT
  Age: 43 Year
  Sex: Male
  Weight: 64 kg

DRUGS (5)
  1. LAMICTAL [Suspect]
     Active Substance: LAMOTRIGINE
     Dosage: 0.5 DF, BID
     Route: 048
  2. LAMICTAL [Suspect]
     Active Substance: LAMOTRIGINE
     Dosage: 1.5 DF, BID
  3. LAMICTAL [Suspect]
     Active Substance: LAMOTRIGINE
     Indication: EPILEPSY
     Dosage: 1 DF, BID
     Route: 048
     Dates: end: 20161001
  4. LAMICTAL [Suspect]
     Active Substance: LAMOTRIGINE
     Dosage: 1 DF, BID
  5. OXCARBAZEPINE. [Suspect]
     Active Substance: OXCARBAZEPINE
     Indication: EPILEPSY
     Dosage: UNK
     Route: 048
     Dates: end: 20161001

REACTIONS (9)
  - Pancreatitis [Recovering/Resolving]
  - Weight decreased [Unknown]
  - Chronic gastritis [Recovered/Resolved]
  - Ileus [Recovering/Resolving]
  - Insomnia [Unknown]
  - Rash [Recovered/Resolved]
  - Inflammation [Recovered/Resolved]
  - Nightmare [Recovered/Resolved]
  - Off label use [Unknown]

NARRATIVE: CASE EVENT DATE: 20161031
